FAERS Safety Report 7523528-4 (Version None)
Quarter: 2011Q2

REPORT INFORMATION
  Report Type: 
  Country: None (occurrence: None)
  Receive Date: 20110601
  Receipt Date: 20110601
  Transmission Date: 20111010
  Serious: Yes (Other)
  Sender: FDA-Public Use
  Company Number: None

PATIENT
  Sex: Female
  Weight: 65.7716 kg

DRUGS (4)
  1. CYMBALTA [Suspect]
     Indication: BURNING SENSATION
     Dosage: 30MG 1 TAB HS PO
     Route: 048
     Dates: start: 20110502, end: 20110503
  2. CYMBALTA [Suspect]
     Indication: PAIN IN EXTREMITY
     Dosage: 30MG 1 TAB HS PO
     Route: 048
     Dates: start: 20110502, end: 20110503
  3. LYRICA [Suspect]
     Indication: PAIN IN EXTREMITY
     Dosage: 50MG 1 TAB 3 DAYS THE 1 BID PO
     Route: 048
     Dates: start: 20110419, end: 20110425
  4. LYRICA [Suspect]
     Indication: BURNING SENSATION
     Dosage: 50MG 1 TAB 3 DAYS THE 1 BID PO
     Route: 048
     Dates: start: 20110419, end: 20110425

REACTIONS (2)
  - MUSCLE TWITCHING [None]
  - MUSCLE SPASMS [None]
